FAERS Safety Report 7964766-6 (Version None)
Quarter: 2011Q4

REPORT INFORMATION
  Report Type: 
  Country: None (occurrence: None)
  Receive Date: 20111206
  Receipt Date: 20111206
  Transmission Date: 20120403
  Serious: Yes (Hospitalization)
  Sender: FDA-Public Use
  Company Number: None

PATIENT
  Sex: Male
  Weight: 67.6 kg

DRUGS (3)
  1. PACLITAXEL [Suspect]
     Dosage: 362 MG
  2. BEVACIZUMAB (RHUMAB VEGF) [Suspect]
     Dosage: 1110 MG
  3. CARBOPLATIN [Suspect]
     Dosage: 602 MG

REACTIONS (1)
  - PULMONARY EMBOLISM [None]
